FAERS Safety Report 8045032-X (Version None)
Quarter: 2012Q1

REPORT INFORMATION
  Report Type: 
  Country: None (occurrence: None)
  Receive Date: 20120113
  Receipt Date: 20120110
  Transmission Date: 20120608
  Serious: Yes (Death, Congenital Anomaly)
  Sender: FDA-Public Use
  Company Number: PHHY2012DK002222

PATIENT
  Sex: Female

DRUGS (2)
  1. TEGRETOL [Suspect]
     Indication: EPILEPSY
     Dosage: 200 MG, WEEKLY
     Route: 064
  2. VITAMINS NOS [Concomitant]

REACTIONS (15)
  - EXOMPHALOS [None]
  - FOETAL EXPOSURE DURING PREGNANCY [None]
  - SEPSIS [None]
  - SEPTIC SHOCK [None]
  - RENAL APLASIA [None]
  - PYURIA [None]
  - BLADDER DILATATION [None]
  - CONGENITAL FOOT MALFORMATION [None]
  - MATERNAL DRUGS AFFECTING FOETUS [None]
  - CONGENITAL URETHRAL ANOMALY [None]
  - ANURIA [None]
  - ANAL ATRESIA [None]
  - CONGENITAL GENITAL MALFORMATION [None]
  - CONGENITAL HYDRONEPHROSIS [None]
  - URETHRAL OBSTRUCTION [None]
